FAERS Safety Report 17907281 (Version 1)
Quarter: 2020Q2

REPORT INFORMATION
  Report Type: Spontaneous
  Country: NL (occurrence: FR)
  Receive Date: 20200617
  Receipt Date: 20200617
  Transmission Date: 20200714
  Serious: Yes (Hospitalization)
  Sender: FDA-Public Use
  Company Number: FR-FRESENIUS KABI-FK202005872

PATIENT
  Age: 68 Year
  Sex: Female

DRUGS (35)
  1. SMOFLIPID [Suspect]
     Active Substance: FISH OIL\MEDIUM-CHAIN TRIGLYCERIDES\OLIVE OIL\SOYBEAN OIL
     Indication: SHORT-BOWEL SYNDROME
     Dosage: 1250ML; SMOF 20 PERCENT, FORMULA 1 LIPID BAG, PARENTERAL
     Route: 042
  2. SODIUM CHLORIDE (MANUFACTURER UNKNOWN) [Suspect]
     Active Substance: SODIUM CHLORIDE
     Indication: SHORT-BOWEL SYNDROME
     Dosage: 15ML; NACL 500 ML 20 PERCENT, FORMULA 2 LIPID BAG, PARENTERAL
     Route: 042
  3. SODIUM CHLORIDE (MANUFACTURER UNKNOWN) [Suspect]
     Active Substance: SODIUM CHLORIDE
     Dosage: 15ML; NACL 500 ML 20 PERCENT, FORMULA 1 LIPID BAG, PARENTERAL
     Route: 042
  4. GLUCOSE (MANUFACTURER UNKNOWN) [Suspect]
     Active Substance: DEXTROSE
     Dosage: 1000ML; FORMULA 2 LIPID BAG, PARENTERAL
     Route: 042
  5. CALCIUM GLUCONATE. [Suspect]
     Active Substance: CALCIUM GLUCONATE
     Dosage: 65ML; GLUCO CA 500 ML, 10 PERCENT, FORMULA 1 LIPID BAG, PARENTERAL
     Route: 042
  6. ASCORBIC ACID/PYRIDOXINE HYDROCHLORIDE/BIOTIN/FOLIC ACID/COLECALCIFEROL/CYANOCOBALAMIN/RETINOL PALMI [Suspect]
     Active Substance: VITAMINS
     Indication: SHORT-BOWEL SYNDROME
     Dosage: 25ML; FORMULA 2 LIPID BAG, PARENTERAL
     Route: 042
  7. MAGNESIUM SULFATE. [Suspect]
     Active Substance: MAGNESIUM SULFATE
     Dosage: 370ML; MG PLUS PLUS MGSO4 15 PERCENT, FORMULA 1 LIPID BAG, PARENTERAL
     Route: 042
  8. SELENIUM [Suspect]
     Active Substance: SELENIUM
     Dosage: 25ML, FORMULA 2 LIPID BAG, PARENTERAL
     Route: 042
  9. AMINO ACIDS NOS [Suspect]
     Active Substance: AMINO ACIDS, SOURCE UNSPECIFIED
     Indication: SHORT-BOWEL SYNDROME
     Dosage: 3500ML; FORMULA 3 LIPID FREE BAG, PARENTERAL
     Route: 042
  10. GLUCOSE (MANUFACTURER UNKNOWN) [Suspect]
     Active Substance: DEXTROSE
     Indication: SHORT-BOWEL SYNDROME
     Dosage: 1000ML; FORMULA 3 LIPID FREE BAG, PARENTERAL
     Route: 042
  11. ASCORBIC ACID/PYRIDOXINE HYDROCHLORIDE/BIOTIN/FOLIC ACID/COLECALCIFEROL/CYANOCOBALAMIN/RETINOL PALMI [Suspect]
     Active Substance: VITAMINS
     Dosage: 25ML; FORMULA 1 LIPID BAG, PARENTERAL
     Route: 042
  12. TOCOPHERYL ACETATE [Suspect]
     Active Substance: .ALPHA.-TOCOPHEROL ACETATE
     Dosage: 5ML; FORMULA 2 LIPID BAG, PARENTERAL
     Route: 042
  13. SMOFLIPID [Suspect]
     Active Substance: FISH OIL\MEDIUM-CHAIN TRIGLYCERIDES\OLIVE OIL\SOYBEAN OIL
     Dosage: 1250ML; SMOF 20 PERCENT, FORMULA 2 LIPID BAG, PARENTERAL
     Route: 042
  14. POTASSIUM CHLORIDE (MANUFACTURER UNKNOWN) [Suspect]
     Active Substance: POTASSIUM CHLORIDE
     Dosage: 300ML; KCL 500 ML 10 PERCENT, FORMULA 2 LIPID BAG, PARENTERAL
     Route: 042
  15. GLUCOSE (MANUFACTURER UNKNOWN) [Suspect]
     Active Substance: DEXTROSE
     Dosage: 1000ML; FORMULA 1 LIPID BAG, PARENTERAL
     Route: 042
  16. PHYTOMENADIONE [Suspect]
     Active Substance: PHYTONADIONE
     Indication: SHORT-BOWEL SYNDROME
     Dosage: 5ML; FORMULA 1 LIPID BAG
     Route: 042
  17. CALCIUM GLUCONATE. [Suspect]
     Active Substance: CALCIUM GLUCONATE
     Dosage: 65ML; GLUCO CA  500 ML,10 PERCENT, FORMULA 3 LIPID FREE BAG, PARENTERAL
     Route: 042
  18. AMINO ACIDS NOS [Suspect]
     Active Substance: AMINO ACIDS, SOURCE UNSPECIFIED
     Dosage: 3500ML; FORMULA 1 LIPID BAG, PARENTERAL
     Route: 042
  19. POTASSIUM CHLORIDE (MANUFACTURER UNKNOWN) [Suspect]
     Active Substance: POTASSIUM CHLORIDE
     Indication: SHORT-BOWEL SYNDROME
     Dosage: 300ML; KCL 500 ML 10 PERCENT, FORMULA 3 LIPID FREE BAG, PARENTERAL
     Route: 042
  20. POTASSIUM CHLORIDE (MANUFACTURER UNKNOWN) [Suspect]
     Active Substance: POTASSIUM CHLORIDE
     Dosage: 300ML; KCL 500 ML 10 PERCENT, FORMULA 1 LIPID BAG, PARENTERAL
     Route: 042
  21. AMINO ACIDS NOS [Suspect]
     Active Substance: AMINO ACIDS, SOURCE UNSPECIFIED
     Dosage: 3500ML; FORMULA 2 LIPID BAG, PARENTERAL
     Route: 042
  22. GLUCOSE 1-PHOSPHATE DISODIUM [Suspect]
     Active Substance: .ALPHA.-GLUCOSE-1-PHOSPHATE
     Dosage: 455ML; PO4 PHOCYTAN VIAL, FORMULA 3 LIPID FREE BAG, PARENTERAL
     Route: 042
  23. ASCORBIC ACID/PYRIDOXINE HYDROCHLORIDE/BIOTIN/FOLIC ACID/COLECALCIFEROL/CYANOCOBALAMIN/RETINOL PALMI [Suspect]
     Active Substance: VITAMINS
     Dosage: 25ML; FORMULA 3 LIPID FREE BAG, PARENTERAL
     Route: 042
  24. MAGNESIUM SULFATE. [Suspect]
     Active Substance: MAGNESIUM SULFATE
     Dosage: 370ML; MG PLUS PLUS MGSO4 15 PERCENT, FORMULA 3 LIPID FREE BAG, PARENTERAL
     Route: 042
  25. TOCOPHERYL ACETATE [Suspect]
     Active Substance: .ALPHA.-TOCOPHEROL ACETATE
     Indication: SHORT-BOWEL SYNDROME
     Dosage: 5ML; FORMULA 1 LIPID BAG, PARENTERAL
     Route: 042
  26. SELENIUM [Suspect]
     Active Substance: SELENIUM
     Dosage: 25 ML, FORMULA 1 LIPID BAG, PARENTERAL
     Route: 042
  27. GLUCOSE 1-PHOSPHATE DISODIUM [Suspect]
     Active Substance: .ALPHA.-GLUCOSE-1-PHOSPHATE
     Dosage: 455ML; PO4 PHOCYTAN VIAL, FORMULA 1 LIPID BAG, PARENTERAL
     Route: 042
  28. ZINC. [Suspect]
     Active Substance: ZINC
     Dosage: 50ML; FORMULA 3 LIPID FREE BAG, PARENTERAL
     Route: 042
  29. SODIUM CHLORIDE (MANUFACTURER UNKNOWN) [Suspect]
     Active Substance: SODIUM CHLORIDE
     Dosage: 15ML; NACL 500 ML 20 PERCENT, FORMULA 3 LIPID FREE BAG, PARENTERAL
     Route: 042
  30. CALCIUM GLUCONATE. [Suspect]
     Active Substance: CALCIUM GLUCONATE
     Indication: SHORT-BOWEL SYNDROME
     Dosage: 65ML; GLUCO CA 500 ML 10 PERCENT, FORMULA 2 LIPID BAG, PARENTERAL
     Route: 042
  31. GLUCOSE 1-PHOSPHATE DISODIUM [Suspect]
     Active Substance: .ALPHA.-GLUCOSE-1-PHOSPHATE
     Indication: SHORT-BOWEL SYNDROME
     Dosage: 455ML; PO4 PHOCYTAN VIAL, FORMULA 2 LIPID BAG, PARENTERAL
     Route: 042
  32. ZINC. [Suspect]
     Active Substance: ZINC
     Indication: SHORT-BOWEL SYNDROME
     Dosage: 50ML; FORMULA 1 LIPID BAG, PARENTERAL
     Route: 042
  33. ZINC. [Suspect]
     Active Substance: ZINC
     Dosage: 50ML; FORMULA 2 LIPID BAG, PARENTERAL
     Route: 042
  34. MAGNESIUM SULFATE. [Suspect]
     Active Substance: MAGNESIUM SULFATE
     Indication: SHORT-BOWEL SYNDROME
     Dosage: 370ML; MG PLUS PLUS MGSO4 15 PERCENT, FORMULA 2 LIPID BAG, PARENTERAL
     Route: 042
  35. SELENIUM [Suspect]
     Active Substance: SELENIUM
     Indication: SHORT-BOWEL SYNDROME
     Dosage: 25ML, FORMULA 3 LIPID FREE BAG, PARENTERAL
     Route: 042

REACTIONS (2)
  - Malaise [Recovered/Resolved]
  - Dermatitis allergic [Recovered/Resolved]

NARRATIVE: CASE EVENT DATE: 20200419
